FAERS Safety Report 14292888 (Version 1)
Quarter: 2017Q4

REPORT INFORMATION
  Report Type: Spontaneous
  Country: JP (occurrence: JP)
  Receive Date: 20171215
  Receipt Date: 20171215
  Transmission Date: 20180321
  Serious: Yes (Other)
  Sender: FDA-Public Use
  Company Number: JP-PFIZER INC-2017530902

PATIENT
  Sex: Female

DRUGS (2)
  1. TS-1 [Suspect]
     Active Substance: GIMERACIL\OTERACIL\TEGAFUR
     Indication: BREAST CANCER
     Dosage: 100 MG, DAILY (100 MG/DAY)
     Dates: start: 20110502, end: 20110711
  2. CAMPTO [Suspect]
     Active Substance: IRINOTECAN
     Indication: BREAST CANCER
     Dosage: 91 MG, 1X/DAY (91 MG/BODY)
     Route: 041
     Dates: start: 20110502, end: 20110711

REACTIONS (2)
  - Gastric ulcer [Unknown]
  - Abdominal pain upper [Unknown]
